FAERS Safety Report 17753948 (Version 3)
Quarter: 2025Q3

REPORT INFORMATION
  Report Type: Spontaneous
  Country: EU (occurrence: EU)
  Receive Date: 20200507
  Receipt Date: 20250825
  Transmission Date: 20251021
  Serious: Yes (Other)
  Sender: AUROBINDO
  Company Number: EU-LESVI-2020072147

PATIENT
  Age: 87 Year
  Sex: Male

DRUGS (3)
  1. LATANOPROST [Suspect]
     Active Substance: LATANOPROST
     Indication: Product used for unknown indication
     Dosage: 2 GTT DROPS, ONCE A DAY, 1 DROP/DAY (PRESCRIBED)
     Route: 047
  2. BISOPROLOL [Suspect]
     Active Substance: BISOPROLOL
     Indication: Product used for unknown indication
     Dosage: 0.5 DOSAGE FORM, EVERY OTHER DAY
     Route: 048
  3. XALATAN [Suspect]
     Active Substance: LATANOPROST
     Indication: Product used for unknown indication
     Dosage: 2 GTT DROPS, ONCE A DAY, (ADMINISTERED), 1 DROP/DAY (PRESCRIBED)
     Route: 047

REACTIONS (7)
  - Bradycardia [Recovered/Resolved]
  - Arrhythmia [Recovered/Resolved]
  - Dyspnoea [Recovered/Resolved]
  - Ventricular extrasystoles [Recovered/Resolved]
  - Overdose [Recovered/Resolved]
  - Medication error [Unknown]
  - Intentional product misuse [Recovered/Resolved]
